FAERS Safety Report 23262614 (Version 1)
Quarter: 2023Q4

REPORT INFORMATION
  Report Type: Report from Study
  Country: UY (occurrence: UY)
  Receive Date: 20231205
  Receipt Date: 20231205
  Transmission Date: 20240110
  Serious: Yes (Other)
  Sender: FDA-Public Use
  Company Number: UY-ABBVIE-5279777

PATIENT
  Age: 60 Year
  Sex: Female

DRUGS (1)
  1. HUMIRA [Suspect]
     Active Substance: ADALIMUMAB
     Indication: Rheumatoid arthritis
     Dosage: FORM STRENGTH: 40MG
     Route: 058
     Dates: start: 20141205

REACTIONS (8)
  - Diarrhoea [Unknown]
  - Diarrhoea [Recovered/Resolved]
  - Charcot-Leyden crystals [Not Recovered/Not Resolved]
  - Gastrointestinal inflammation [Unknown]
  - Coeliac disease [Unknown]
  - Haemorrhoids [Recovered/Resolved]
  - Flatulence [Recovering/Resolving]
  - Nausea [Unknown]

NARRATIVE: CASE EVENT DATE: 20230521
